FAERS Safety Report 6043050-4 (Version None)
Quarter: 2009Q1

REPORT INFORMATION
  Report Type: 
  Country: None (occurrence: None)
  Receive Date: 20090119
  Receipt Date: 20090114
  Transmission Date: 20090719
  Serious: Yes (Hospitalization, Disabling)
  Sender: FDA-Public Use
  Company Number: JP-ABBOTT-09P-087-0497940-00

PATIENT
  Sex: Male

DRUGS (5)
  1. KALETRA [Suspect]
     Indication: HIV INFECTION
     Dosage: 800/200MG
     Route: 048
     Dates: start: 20070401
  2. LAMIVUDINE [Suspect]
     Indication: HIV INFECTION
     Route: 048
     Dates: start: 20070401
  3. ABACAVIR [Suspect]
     Indication: HIV INFECTION
     Route: 048
     Dates: start: 20070401
  4. CARVEDILOL [Concomitant]
     Indication: VENTRICULAR TACHYCARDIA
     Route: 048
     Dates: start: 20070401
  5. SOTALOL HCL [Concomitant]
     Indication: VENTRICULAR TACHYCARDIA
     Route: 048
     Dates: start: 20070401

REACTIONS (2)
  - CEREBRAL HAEMORRHAGE [None]
  - GAMMA-GLUTAMYLTRANSFERASE INCREASED [None]
